FAERS Safety Report 5920878-X (Version None)
Quarter: 2008Q4

REPORT INFORMATION
  Report Type: 
  Country: None (occurrence: None)
  Receive Date: 20081016
  Receipt Date: 20081007
  Transmission Date: 20090506
  Serious: Yes (Death, Other)
  Sender: FDA-Public Use
  Company Number: GB-TEVA-178578ISR

PATIENT
  Age: 62 Year
  Sex: Male

DRUGS (2)
  1. FLUDARABINE PHOSPHATE [Suspect]
     Indication: SKIN GRAFT
  2. ALEMTUZUMAB [Suspect]
     Indication: SKIN GRAFT

REACTIONS (8)
  - DYSPHAGIA [None]
  - DYSPNOEA [None]
  - EPSTEIN-BARR VIRUS ASSOCIATED LYMPHOPROLIFERATIVE DISORDER [None]
  - EPSTEIN-BARR VIRUS INFECTION [None]
  - HYPOXIA [None]
  - OROPHARYNGEAL PAIN [None]
  - PYREXIA [None]
  - SINUS CONGESTION [None]
